FAERS Safety Report 22797723 (Version 2)
Quarter: 2025Q3

REPORT INFORMATION
  Report Type: Spontaneous
  Country: US (occurrence: US)
  Receive Date: 20230808
  Receipt Date: 20250730
  Transmission Date: 20251020
  Serious: Yes (Other)
  Sender: AMNEAL
  Company Number: US-AMNEAL PHARMACEUTICALS-2022-AMRX-02211

PATIENT
  Age: 64 Year
  Sex: Male

DRUGS (12)
  1. BACLOFEN [Suspect]
     Active Substance: BACLOFEN
     Indication: Muscle spasms
     Dosage: 90 MICROGRAM, DAILY
     Route: 037
     Dates: start: 20210802
  2. BACLOFEN [Suspect]
     Active Substance: BACLOFEN
     Indication: Spinal pain
     Dosage: 540 MICROGRAM, DAILY
     Route: 065
  3. BACLOFEN [Suspect]
     Active Substance: BACLOFEN
     Route: 065
  4. BACLOFEN [Suspect]
     Active Substance: BACLOFEN
     Dosage: 1000 MICROGRAM, DAILY
     Route: 037
  5. BACLOFEN [Suspect]
     Active Substance: BACLOFEN
     Route: 037
  6. GABLOFEN [Concomitant]
     Active Substance: BACLOFEN
     Indication: Product used for unknown indication
     Route: 065
  7. DICLOFENAC DIETHYLAMINE [Concomitant]
     Active Substance: DICLOFENAC DIETHYLAMINE
     Indication: Product used for unknown indication
     Route: 065
  8. Bertas [Concomitant]
     Indication: Product used for unknown indication
  9. VALIUM [Concomitant]
     Active Substance: DIAZEPAM
     Indication: Product used for unknown indication
     Route: 065
  10. UNSPECIFIED INGREDIENT [Concomitant]
     Active Substance: UNSPECIFIED INGREDIENT
     Indication: Product used for unknown indication
     Route: 065
  11. GABAPENTIN [Concomitant]
     Active Substance: GABAPENTIN
     Indication: Muscle spasticity
     Route: 065
  12. CLONAZEPAM [Concomitant]
     Active Substance: CLONAZEPAM
     Indication: Muscle spasticity
     Route: 065

REACTIONS (7)
  - Therapy non-responder [Not Recovered/Not Resolved]
  - Mobility decreased [Not Recovered/Not Resolved]
  - Decubitus ulcer [Recovering/Resolving]
  - Acquired gene mutation [Unknown]
  - Rhinitis allergic [Unknown]
  - Muscle spasticity [Not Recovered/Not Resolved]
  - Muscle spasms [Unknown]

NARRATIVE: CASE EVENT DATE: 20210802
